FAERS Safety Report 10651825 (Version 2)
Quarter: 2015Q2

REPORT INFORMATION
  Report Type: Report from Study
  Country: JP (occurrence: JP)
  Receive Date: 20141215
  Receipt Date: 20150414
  Transmission Date: 20150821
  Serious: Yes (Life-Threatening)
  Sender: FDA-Public Use
  Company Number: JP-SA-2014SA171634

PATIENT
  Age: 63 Year
  Sex: Male
  Weight: 62.8 kg

DRUGS (2)
  1. THYMOGLOBULINE [Suspect]
     Active Substance: LAPINE T-LYMPHOCYTE IMMUNE GLOBULIN
     Indication: BONE MARROW CONDITIONING REGIMEN
     Route: 041
     Dates: start: 20130812, end: 20130812
  2. FLUCONAZOLE. [Concomitant]
     Active Substance: FLUCONAZOLE
     Indication: PROPHYLAXIS
     Dates: start: 20130809, end: 20131009

REACTIONS (4)
  - Infusion related reaction [Recovered/Resolved]
  - Chills [Recovered/Resolved]
  - Oxygen saturation decreased [Recovered/Resolved]
  - Blood pressure increased [Recovered/Resolved]

NARRATIVE: CASE EVENT DATE: 20130812
